FAERS Safety Report 4348531-7 (Version None)
Quarter: 2004Q2

REPORT INFORMATION
  Report Type: 
  Country: None (occurrence: None)
  Receive Date: 20040423
  Receipt Date: 20040420
  Transmission Date: 20050107
  Serious: Yes (Hospitalization, Other)
  Sender: FDA-Public Use
  Company Number: 200411705BCC

PATIENT
  Age: 64 Year
  Sex: Female
  Weight: 90.7194 kg

DRUGS (5)
  1. ASPIRIN [Suspect]
     Indication: HEADACHE
     Dosage: 325-650 MG, PRN, ORAL
     Route: 048
  2. ASPIRIN [Suspect]
     Indication: MYOCARDIAL INFARCTION
     Dosage: 325-650 MG, PRN, ORAL
     Route: 048
  3. ASPIRIN [Suspect]
     Indication: PAIN
     Dosage: 325-650 MG, PRN, ORAL
     Route: 048
  4. ASPIRIN [Suspect]
     Indication: PROPHYLAXIS
     Dosage: 325-650 MG, PRN, ORAL
     Route: 048
  5. HYDROCHLOROTHIAZIDE [Concomitant]

REACTIONS (3)
  - HAEMATEMESIS [None]
  - LOSS OF CONSCIOUSNESS [None]
  - ULCER HAEMORRHAGE [None]
